FAERS Safety Report 19982880 (Version 2)
Quarter: 2022Q1

REPORT INFORMATION
  Report Type: Spontaneous
  Country: IT (occurrence: IT)
  Receive Date: 20211021
  Receipt Date: 20220321
  Transmission Date: 20220423
  Serious: Yes (Death, Other)
  Sender: FDA-Public Use
  Company Number: IT-AMGEN-ITASP2021159035

PATIENT

DRUGS (4)
  1. TRASTUZUMAB [Suspect]
     Active Substance: TRASTUZUMAB
     Indication: HER2 positive breast cancer
     Dosage: UNK
     Route: 065
  2. CAPECITABINE [Concomitant]
     Active Substance: CAPECITABINE
     Dosage: UNK
  3. ADO-TRASTUZUMAB EMTANSINE [Concomitant]
     Active Substance: ADO-TRASTUZUMAB EMTANSINE
     Dosage: UNK
  4. PERTUZUMAB [Concomitant]
     Active Substance: PERTUZUMAB
     Dosage: UNK

REACTIONS (5)
  - Death [Fatal]
  - Breast cancer metastatic [Unknown]
  - Therapy non-responder [Unknown]
  - Therapy partial responder [Unknown]
  - Off label use [Unknown]
